FAERS Safety Report 15127789 (Version 4)
Quarter: 2019Q3

REPORT INFORMATION
  Report Type: Report from Study
  Country: NL (occurrence: NL)
  Receive Date: 20180710
  Receipt Date: 20190826
  Transmission Date: 20191004
  Serious: Yes (Other)
  Sender: FDA-Public Use
  Company Number: NL-SHIRE-2017BLT000620

PATIENT

DRUGS (21)
  1. SALBUTAMOL [Concomitant]
     Active Substance: ALBUTEROL
     Indication: ASTHMA
  2. HUMAN IMMUNOGLOBULIN; HYALURONIDASE [Suspect]
     Active Substance: HUMAN IMMUNOGLOBULIN G\HYALURONIDASE RECOMBINANT HUMAN
     Dosage: 100 ML IG (UNKNOWN RHUPH20), UNK
     Route: 058
     Dates: start: 20170419, end: 20170419
  3. COTRIMOXAZOL [Concomitant]
     Active Substance: SULFAMETHOXAZOLE\TRIMETHOPRIM
     Indication: SELECTIVE IGG SUBCLASS DEFICIENCY
  4. ROACCUTANE [Concomitant]
     Active Substance: ISOTRETINOIN
     Indication: ACNE
  5. DESLORATADINE. [Concomitant]
     Active Substance: DESLORATADINE
     Indication: PREMEDICATION
  6. ETHINYLESTRADIOL LEVONORGESTREL MYLAN [Concomitant]
     Indication: CONTRACEPTION
  7. HUMAN IMMUNOGLOBULIN; HYALURONIDASE [Suspect]
     Active Substance: HUMAN IMMUNOGLOBULIN G\HYALURONIDASE RECOMBINANT HUMAN
     Indication: SELECTIVE IGG SUBCLASS DEFICIENCY
     Dosage: 60 ML IG, UNK ML RHUPH20
     Route: 058
     Dates: start: 20140511
  8. SINGULAIR [Concomitant]
     Active Substance: MONTELUKAST SODIUM
     Indication: ASTHMA
  9. HUMAN IMMUNOGLOBULIN; HYALURONIDASE [Suspect]
     Active Substance: HUMAN IMMUNOGLOBULIN G\HYALURONIDASE RECOMBINANT HUMAN
     Dosage: 200 ML IG (UNKNOWN RHUPH20), EVERY 3 WK
     Route: 058
     Dates: start: 20170103, end: 20170407
  10. APROVEL [Concomitant]
     Active Substance: IRBESARTAN
     Indication: HYPERTENSION
  11. ESOMEPRAZOL [Concomitant]
     Active Substance: ESOMEPRAZOLE
     Indication: ABDOMINAL PAIN UPPER
  12. AVAMYS [Concomitant]
     Active Substance: FLUTICASONE FUROATE
     Indication: SINUSITIS
  13. EPIPEN [Concomitant]
     Active Substance: EPINEPHRINE
     Indication: EMERGENCY CARE
  14. MELOXICAM. [Concomitant]
     Active Substance: MELOXICAM
     Indication: INFLAMMATION
  15. AVELOX [Concomitant]
     Active Substance: MOXIFLOXACIN HYDROCHLORIDE
     Indication: PNEUMONIA
  16. HUMAN IMMUNOGLOBULIN; HYALURONIDASE [Suspect]
     Active Substance: HUMAN IMMUNOGLOBULIN G\HYALURONIDASE RECOMBINANT HUMAN
     Dosage: 200 ML IG (UNKNOWN RHUPH20), UNK
     Route: 058
     Dates: start: 20170503, end: 20170918
  17. FLUTIFORM [Concomitant]
     Active Substance: FLUTICASONE PROPIONATE\FORMOTEROL FUMARATE
     Indication: ASTHMA
  18. MELOXICAM. [Concomitant]
     Active Substance: MELOXICAM
     Indication: PAIN
  19. ROACCUTANE [Concomitant]
     Active Substance: ISOTRETINOIN
     Indication: ROSACEA
  20. STRIVERDI RESPIMAT [Concomitant]
     Active Substance: OLODATEROL HYDROCHLORIDE
     Indication: ASTHMA
  21. QVAR [Concomitant]
     Active Substance: BECLOMETHASONE DIPROPIONATE
     Indication: ASTHMA

REACTIONS (2)
  - Pleurisy [Recovered/Resolved]
  - Bronchiolitis [Not Recovered/Not Resolved]

NARRATIVE: CASE EVENT DATE: 20161109
